FAERS Safety Report 12810804 (Version 1)
Quarter: 2016Q4

REPORT INFORMATION
  Report Type: Spontaneous
  Country: US (occurrence: US)
  Receive Date: 20161005
  Receipt Date: 20161005
  Transmission Date: 20170207
  Serious: Yes (Other)
  Sender: FDA-Public Use
  Company Number: None

PATIENT
  Age: 58 Year
  Sex: Female
  Weight: 98.43 kg

DRUGS (1)
  1. ESTRADIOL ORAL TABLETS (GENERIC) 0.5MG [Suspect]
     Active Substance: ESTRADIOL
     Indication: MENOPAUSAL SYMPTOMS
     Route: 048
     Dates: start: 20150923, end: 20151103

REACTIONS (5)
  - Sleep disorder [None]
  - Insomnia [None]
  - Acne [None]
  - Mood altered [None]
  - Irritability [None]
